FAERS Safety Report 18059098 (Version 1)
Quarter: 2020Q3

REPORT INFORMATION
  Report Type: Report from Study
  Country: US (occurrence: US)
  Receive Date: 20200723
  Receipt Date: 20200723
  Transmission Date: 20201103
  Serious: Yes (Death)
  Sender: FDA-Public Use
  Company Number: US-ADAMAS PHARMA, LLC-2020ADA01359

PATIENT
  Sex: Male
  Weight: 67.76 kg

DRUGS (3)
  1. GOCOVRI [Suspect]
     Active Substance: AMANTADINE
     Indication: DYSKINESIA
     Dosage: 68.5 MG, 1X/DAY, AT BEDTIME
     Route: 048
     Dates: start: 20181214, end: 201908
  2. GOCOVRI [Suspect]
     Active Substance: AMANTADINE
     Dosage: 68.5 MG, 1X/DAY, AT BEDTIME
     Route: 048
     Dates: start: 201909, end: 202004
  3. UNSPECIFIED LEVODOPA?BASED THERAPY [Concomitant]
     Active Substance: LEVODOPA

REACTIONS (1)
  - Intestinal obstruction [Fatal]
